FAERS Safety Report 6091005-6 (Version None)
Quarter: 2009Q1

REPORT INFORMATION
  Report Type: 
  Country: None (occurrence: None)
  Receive Date: 20090219
  Receipt Date: 20090219
  Transmission Date: 20090719
  Serious: No
  Sender: FDA-Public Use
  Company Number: None

PATIENT
  Sex: Male
  Weight: 87.5442 kg

DRUGS (1)
  1. BYETTA [Suspect]
     Indication: TYPE 2 DIABETES MELLITUS
     Dosage: 10 MCG BID SQ STARTED @ 5 MG BID THEN INCREASE TO 10 BID X 1 MONTH TIL 1/30/09
     Route: 058
     Dates: start: 20080801

REACTIONS (2)
  - DIARRHOEA [None]
  - PANCREATITIS [None]
